FAERS Safety Report 5397601-3 (Version None)
Quarter: 2007Q3

REPORT INFORMATION
  Report Type: 
  Country: None (occurrence: None)
  Receive Date: 20070723
  Receipt Date: 20070723
  Transmission Date: 20080115
  Serious: Yes (Other)
  Sender: FDA-Public Use
  Company Number: None

PATIENT
  Age: 47 Year
  Sex: Male
  Weight: 73.0291 kg

DRUGS (1)
  1. AVODART [Suspect]
     Dosage: 0.5  ONCE DAILY  PO
     Route: 048
     Dates: start: 20070519, end: 20070721

REACTIONS (5)
  - ANXIETY [None]
  - BLOOD GLUCOSE ABNORMAL [None]
  - CONDITION AGGRAVATED [None]
  - DEPRESSION [None]
  - GLUCOSE TOLERANCE IMPAIRED [None]
